FAERS Safety Report 7654018-6 (Version None)
Quarter: 2011Q3

REPORT INFORMATION
  Report Type: 
  Country: None (occurrence: None)
  Receive Date: 20110803
  Receipt Date: 20110721
  Transmission Date: 20111222
  Serious: Yes (Hospitalization)
  Sender: FDA-Public Use
  Company Number: PHHY2011JP58791

PATIENT
  Age: 81 Year
  Sex: Male

DRUGS (4)
  1. RASILEZ [Suspect]
     Indication: HYPERTENSION
     Dosage: 150 MG, DAILY
     Route: 048
  2. JANUVIA [Suspect]
     Dosage: 50 MG, DAILY
     Route: 048
     Dates: start: 20110618
  3. TS 1 [Concomitant]
     Dosage: UNK UKN, UNK
  4. ADALAT [Concomitant]
     Dosage: 60 MG, UNK
     Route: 048

REACTIONS (1)
  - HYPERHIDROSIS [None]
